FAERS Safety Report 8521763-X (Version None)
Quarter: 2012Q3

REPORT INFORMATION
  Report Type: 
  Country: None (occurrence: None)
  Receive Date: 20120719
  Receipt Date: 20120710
  Transmission Date: 20120928
  Serious: Yes (Other)
  Sender: FDA-Public Use
  Company Number: CA-JNJFOC-20120705373

PATIENT
  Sex: Female
  Weight: 56 kg

DRUGS (5)
  1. WELLBUTRIN [Concomitant]
     Route: 065
  2. REMICADE [Suspect]
     Indication: CROHN'S DISEASE
     Route: 042
     Dates: start: 20071206
  3. ZOLOFT [Concomitant]
     Route: 065
  4. REMICADE [Suspect]
     Dosage: 31ST INFUSION
     Route: 042
     Dates: start: 20120710
  5. SOLU-CORTEF [Concomitant]
     Indication: PREMEDICATION
     Route: 042

REACTIONS (3)
  - EAR PAIN [None]
  - PURULENT DISCHARGE [None]
  - OROPHARYNGEAL PAIN [None]
